FAERS Safety Report 17781493 (Version 1)
Quarter: 2020Q2

REPORT INFORMATION
  Report Type: Spontaneous
  Country: US (occurrence: US)
  Receive Date: 20200514
  Receipt Date: 20200514
  Transmission Date: 20200714
  Serious: No
  Sender: FDA-Public Use
  Company Number: US-BION-008256

PATIENT
  Age: 61 Year
  Sex: Female
  Weight: 58.97 kg

DRUGS (1)
  1. MOTRIN IB [Suspect]
     Active Substance: IBUPROFEN
     Indication: BACK PAIN
     Dosage: ONE LIQUID GEL TWO DAYS IN A ROW A COUPLE WEEKS AGO
     Route: 048

REACTIONS (1)
  - Drug ineffective [Not Recovered/Not Resolved]
